FAERS Safety Report 9524757 (Version 1)
Quarter: 2013Q3

REPORT INFORMATION
  Report Type: Spontaneous
  Country: US (occurrence: US)
  Receive Date: 20130916
  Receipt Date: 20130916
  Transmission Date: 20140515
  Serious: No
  Sender: FDA-Public Use
  Company Number: US-TEVA-431275USA

PATIENT
  Sex: Female
  Weight: 77.18 kg

DRUGS (1)
  1. PLAN B ONE-STEP [Suspect]
     Route: 048

REACTIONS (1)
  - Blood urine present [Unknown]
